FAERS Safety Report 7601490-3 (Version None)
Quarter: 2011Q2

REPORT INFORMATION
  Report Type: 
  Country: None (occurrence: None)
  Receive Date: 20110629
  Receipt Date: 20110615
  Transmission Date: 20111010
  Serious: Yes (Death)
  Sender: FDA-Public Use
  Company Number: 2011MA007237

PATIENT
  Age: 36 Year
  Sex: Male

DRUGS (1)
  1. METFORMIN HCL [Suspect]
     Indication: HYPERGLYCAEMIA
     Dosage: 500 MG, BID,

REACTIONS (8)
  - METABOLIC ACIDOSIS [None]
  - HEPATORENAL FAILURE [None]
  - MULTI-ORGAN FAILURE [None]
  - LACTIC ACIDOSIS [None]
  - PARTIAL SEIZURES [None]
  - DIALYSIS [None]
  - NO THERAPEUTIC RESPONSE [None]
  - HAEMODIALYSIS [None]
